FAERS Safety Report 6153612-1 (Version None)
Quarter: 2009Q2

REPORT INFORMATION
  Report Type: 
  Country: None (occurrence: None)
  Receive Date: 20090413
  Receipt Date: 20090401
  Transmission Date: 20091009
  Serious: Yes (Other)
  Sender: FDA-Public Use
  Company Number: US-PFIZER INC-2009192709

PATIENT
  Sex: Female
  Weight: 48.526 kg

DRUGS (10)
  1. NEURONTIN [Suspect]
     Indication: MENTAL DISORDER
     Dosage: UNK
     Dates: start: 20000101
  2. NEURONTIN [Suspect]
     Indication: BIPOLAR DISORDER
  3. NEURONTIN [Suspect]
     Indication: DEPRESSION
  4. NEURONTIN [Suspect]
     Indication: ANXIETY
  5. ABILIFY [Suspect]
  6. LEVOTHYROXINE [Concomitant]
     Indication: THYROID DISORDER
     Dosage: UNK
  7. ETODOLAC [Concomitant]
     Dosage: UNK
  8. FLEXERIL [Concomitant]
     Dosage: UNK
  9. SIMVASTATIN [Concomitant]
     Indication: BLOOD CHOLESTEROL INCREASED
     Dosage: UNK
  10. DYAZIDE [Concomitant]
     Dosage: UNK

REACTIONS (6)
  - ACCIDENT [None]
  - FALL [None]
  - INSOMNIA [None]
  - MENTAL DISORDER [None]
  - NERVOUS SYSTEM DISORDER [None]
  - VISUAL IMPAIRMENT [None]
